FAERS Safety Report 20325552 (Version 15)
Quarter: 2025Q1

REPORT INFORMATION
  Report Type: Report from Study
  Country: JP (occurrence: JP)
  Receive Date: 20220112
  Receipt Date: 20250128
  Transmission Date: 20250409
  Serious: Yes (Life-Threatening, Hospitalization, Other)
  Sender: BRISTOL-MYERS SQUIBB COMPANY
  Company Number: JP-BRISTOL-MYERS SQUIBB COMPANY-BMS-2021-141873

PATIENT
  Sex: Male
  Weight: 51.5 kg

DRUGS (4)
  1. YERVOY [Suspect]
     Active Substance: IPILIMUMAB
     Indication: Non-small cell lung cancer recurrent
     Dosage: 1MG/KG?6?1?
     Route: 041
     Dates: start: 20210906, end: 20211130
  2. OPDIVO [Suspect]
     Active Substance: NIVOLUMAB
     Indication: Non-small cell lung cancer recurrent
     Dosage: 360MG?3?1?
     Route: 041
     Dates: start: 20210906, end: 20211130
  3. CISPLATIN [Suspect]
     Active Substance: CISPLATIN
     Indication: Non-small cell lung cancer recurrent
     Dosage: ???3?1?
     Dates: start: 20210906, end: 20210928
  4. PEMETREXED DISODIUM [Suspect]
     Active Substance: PEMETREXED DISODIUM
     Indication: Non-small cell lung cancer recurrent
     Route: 041
     Dates: start: 20210906, end: 20210928

REACTIONS (2)
  - Cytokine release syndrome [Recovered/Resolved]
  - Immune effector cell-associated neurotoxicity syndrome [Recovering/Resolving]
